FAERS Safety Report 19939143 (Version 1)
Quarter: 2021Q4

REPORT INFORMATION
  Report Type: Spontaneous
  Country: CA (occurrence: CA)
  Receive Date: 20211011
  Receipt Date: 20211011
  Transmission Date: 20220303
  Serious: Yes (Other)
  Sender: FDA-Public Use
  Company Number: CA-TEVA-2021-CA-1962615

PATIENT
  Age: 43 Year
  Sex: Male
  Weight: 73 kg

DRUGS (3)
  1. METHOTREXATE [Suspect]
     Active Substance: METHOTREXATE
     Indication: Product used for unknown indication
     Route: 065
  2. CELECOXIB [Concomitant]
     Active Substance: CELECOXIB
     Dosage: 400 MILLIGRAM DAILY;
     Route: 065
  3. LEFLUNOMIDE [Concomitant]
     Active Substance: LEFLUNOMIDE
     Route: 065

REACTIONS (10)
  - Inflammation [Recovered/Resolved]
  - Inflammatory pain [Recovered/Resolved]
  - Musculoskeletal stiffness [Recovered/Resolved]
  - Nausea [Recovered/Resolved]
  - Psoriasis [Recovered/Resolved]
  - Sacroiliitis [Recovered/Resolved]
  - Spinal pain [Recovered/Resolved]
  - Uveitis [Recovered/Resolved]
  - C-reactive protein increased [Recovered/Resolved]
  - Drug resistance [Recovered/Resolved]
